FAERS Safety Report 5897357-1 (Version None)
Quarter: 2008Q3

REPORT INFORMATION
  Report Type: 
  Country: None (occurrence: None)
  Receive Date: 20080925
  Receipt Date: 20080916
  Transmission Date: 20090109
  Serious: Yes (Hospitalization)
  Sender: FDA-Public Use
  Company Number: US-BAYER-200831080NA

PATIENT
  Sex: Female

DRUGS (3)
  1. BETASERON [Suspect]
     Indication: DRUG USE FOR UNKNOWN INDICATION
     Dates: start: 19960101, end: 20000101
  2. ANTIBIOTIC [Suspect]
     Indication: BRONCHITIS
  3. AVONEX [Concomitant]
     Dates: start: 20080501

REACTIONS (3)
  - BURNS THIRD DEGREE [None]
  - FALL [None]
  - LOSS OF CONSCIOUSNESS [None]
